FAERS Safety Report 16409799 (Version 1)
Quarter: 2019Q2

REPORT INFORMATION
  Report Type: Spontaneous
  Country: US (occurrence: US)
  Receive Date: 20190502
  Receipt Date: 20190502
  Transmission Date: 20190711
  Serious: Yes (Disabling)
  Sender: FDA-Public Use
  Company Number: None

PATIENT

DRUGS (1)
  1. LOTEMAX [Suspect]
     Active Substance: LOTEPREDNOL ETABONATE
     Indication: EYELIDS PRURITUS
     Route: 061
     Dates: start: 20190402, end: 20190403

REACTIONS (2)
  - Tachyphrenia [None]
  - Insomnia [None]
